FAERS Safety Report 6758259-1 (Version None)
Quarter: 2010Q2

REPORT INFORMATION
  Report Type: 
  Country: None (occurrence: None)
  Receive Date: 20100607
  Receipt Date: 20100528
  Transmission Date: 20101027
  Serious: Yes (Hospitalization)
  Sender: FDA-Public Use
  Company Number: US-ABBOTT-10P-163-0648127-00

PATIENT
  Sex: Female
  Weight: 68.1 kg

DRUGS (6)
  1. SYNTHROID [Suspect]
     Indication: HYPOTHYROIDISM
     Dates: start: 20080101, end: 20100401
  2. SYNTHROID [Suspect]
  3. SYNTHROID [Suspect]
     Indication: HYPOTHYROIDISM
     Dates: start: 20100401
  4. DILTIAZEM [Concomitant]
     Indication: ATRIAL FIBRILLATION
  5. SPIRONOLACTONE [Concomitant]
     Indication: FLUID RETENTION
  6. COUMADIN [Concomitant]
     Indication: ATRIAL FIBRILLATION

REACTIONS (4)
  - ALOPECIA [None]
  - CHOLELITHIASIS [None]
  - FATIGUE [None]
  - MALAISE [None]
